FAERS Safety Report 5923849-2 (Version None)
Quarter: 2008Q4

REPORT INFORMATION
  Report Type: 
  Country: None (occurrence: None)
  Receive Date: 20081020
  Receipt Date: 20081010
  Transmission Date: 20090506
  Serious: Yes (Other)
  Sender: FDA-Public Use
  Company Number: GB-ROCHE-591210

PATIENT
  Sex: Male

DRUGS (7)
  1. BONIVA [Suspect]
     Indication: OSTEOPOROSIS
     Route: 048
     Dates: start: 20070608
  2. METFORMIN HYDROCHLORIDE [Concomitant]
     Indication: DIABETES MELLITUS
     Route: 048
  3. GLYCLAZIDE [Concomitant]
     Indication: DIABETES MELLITUS
     Route: 048
  4. PREDNISOLONE [Concomitant]
     Indication: COGAN'S SYNDROME
     Route: 048
  5. LANSOPRAZOLE [Concomitant]
     Indication: HIATUS HERNIA
     Route: 048
  6. VOLTAREN [Concomitant]
     Indication: ANALGESIA
     Route: 048
  7. ACETAMINOPHEN W/ CODEINE [Concomitant]
     Indication: ANALGESIA
     Dosage: 30/500MG AS REQUIRED
     Route: 048

REACTIONS (1)
  - COGAN'S SYNDROME [None]
